FAERS Safety Report 8008506-3 (Version None)
Quarter: 2011Q4

REPORT INFORMATION
  Report Type: 
  Country: None (occurrence: None)
  Receive Date: 20111222
  Receipt Date: 20111222
  Transmission Date: 20120403
  Serious: Yes (Other)
  Sender: FDA-Public Use
  Company Number: None

PATIENT
  Age: 12 Year
  Sex: Female

DRUGS (1)
  1. SUPPRELIN [Suspect]
     Indication: PRECOCIOUS PUBERTY
     Dosage: 50 MG KIT SQ
     Route: 058
     Dates: start: 20110602, end: 20110602

REACTIONS (1)
  - DEVICE MALFUNCTION [None]
